FAERS Safety Report 17327802 (Version 1)
Quarter: 2020Q1

REPORT INFORMATION
  Report Type: Spontaneous
  Country: SE (occurrence: SE)
  Receive Date: 20200127
  Receipt Date: 20200127
  Transmission Date: 20200409
  Serious: Yes (Hospitalization)
  Sender: FDA-Public Use
  Company Number: SE-MYLANLABS-2020M1009023

PATIENT
  Sex: Female

DRUGS (4)
  1. IMOVANE [Suspect]
     Active Substance: ZOPICLONE
     Indication: PRODUCT USED FOR UNKNOWN INDICATION
     Dosage: UNK
     Route: 048
     Dates: start: 20181003, end: 20181003
  2. LERGIGAN (PROMETHAZINE HYDROCHLORIDE) [Suspect]
     Active Substance: PROMETHAZINE HYDROCHLORIDE
     Indication: PRODUCT USED FOR UNKNOWN INDICATION
     Dosage: 25 MG LERGIGAN 50 TABLETTER MINST
     Route: 048
     Dates: start: 20181003, end: 20181003
  3. OLANZAPINE. [Suspect]
     Active Substance: OLANZAPINE
     Indication: PRODUCT USED FOR UNKNOWN INDICATION
     Dosage: UNK
     Route: 048
     Dates: start: 20181003, end: 20181003
  4. OXASCAND [Suspect]
     Active Substance: OXAZEPAM
     Indication: PRODUCT USED FOR UNKNOWN INDICATION
     Dosage: 400 MILLIGRAM
     Route: 048
     Dates: start: 20181003, end: 20181003

REACTIONS (7)
  - Tachycardia [Unknown]
  - Mydriasis [Unknown]
  - Loss of consciousness [Unknown]
  - Confusional state [Unknown]
  - Intentional overdose [Unknown]
  - Intentional self-injury [Unknown]
  - Hypertension [Unknown]

NARRATIVE: CASE EVENT DATE: 20181003
